FAERS Safety Report 9646274 (Version 1)
Quarter: 2013Q4

REPORT INFORMATION
  Report Type: Spontaneous
  Country: DE (occurrence: None)
  Receive Date: 20131024
  Receipt Date: 20131024
  Transmission Date: 20140711
  Serious: Yes (Hospitalization)
  Sender: FDA-Public Use
  Company Number: DE-LHC-2013053

PATIENT
  Age: 50 Year
  Sex: Female

DRUGS (1)
  1. CONOXIA [Suspect]
     Indication: CHRONIC OBSTRUCTIVE PULMONARY DISEASE

REACTIONS (2)
  - Respiratory fume inhalation disorder [None]
  - Thermal burn [None]
